FAERS Safety Report 24700039 (Version 1)
Quarter: 2024Q4

REPORT INFORMATION
  Report Type: Spontaneous
  Country: US (occurrence: US)
  Receive Date: 20241205
  Receipt Date: 20241205
  Transmission Date: 20250115
  Serious: No
  Sender: SANDOZ
  Company Number: US-SANDOZ-SDZ2024US093864

PATIENT

DRUGS (2)
  1. CIMERLI [Suspect]
     Active Substance: RANIBIZUMAB-EQRN
     Dosage: 00.05 MG/KG, QMO
     Route: 050
  2. CIMERLI [Suspect]
     Active Substance: RANIBIZUMAB-EQRN
     Indication: Product used for unknown indication
     Dosage: 00.03 MG/KG, QMO
     Route: 050

REACTIONS (2)
  - Inappropriate schedule of product administration [Unknown]
  - Product contamination [Unknown]

NARRATIVE: CASE EVENT DATE: 20241101
